FAERS Safety Report 23093207 (Version 1)
Quarter: 2023Q4

REPORT INFORMATION
  Report Type: Spontaneous
  Country: DE (occurrence: DE)
  Receive Date: 20231022
  Receipt Date: 20231022
  Transmission Date: 20240109
  Serious: Yes (Hospitalization, Other)
  Sender: FDA-Public Use
  Company Number: DE-ACIS-20231767

PATIENT
  Age: 87 Year
  Sex: Male
  Weight: 70 kg

DRUGS (3)
  1. DICLOFENAC [Suspect]
     Active Substance: DICLOFENAC
     Indication: Actinic keratosis
     Dosage: UNK (START OF THERAPY DATE: ABOUT THREE YEARS AGO; DAILY APPLICATION ON THE AFFECTED AREAS PRESCRIBE
     Route: 061
     Dates: start: 20211004
  2. RAMIPRIL [Concomitant]
     Active Substance: RAMIPRIL
     Indication: Hypertension
     Dosage: 5 MG, QD (1-0-1)
     Route: 048
     Dates: start: 20221205
  3. TAMSULOSIN [Concomitant]
     Active Substance: TAMSULOSIN
     Indication: Benign prostatic hyperplasia
     Dosage: 0.4 MG, QD (PRESCRIBED ABOUT 3 TO 4 YEARS AGO BY UROLOGIST1-0-0-0 PIECE BEFORE EATING)
     Route: 048
     Dates: start: 20221206

REACTIONS (6)
  - Renal impairment [Recovered/Resolved with Sequelae]
  - Abdominal pain [Recovered/Resolved with Sequelae]
  - Gastrointestinal necrosis [Recovered/Resolved]
  - Volvulus of small bowel [Recovered/Resolved]
  - Papillary renal cell carcinoma [Recovered/Resolved]
  - Incorrect product administration duration [Unknown]

NARRATIVE: CASE EVENT DATE: 20220925
